FAERS Safety Report 10028384 (Version 2)
Quarter: 2014Q1

REPORT INFORMATION
  Report Type: Spontaneous
  Country: BR (occurrence: BR)
  Receive Date: 20140321
  Receipt Date: 20140321
  Transmission Date: 20141002
  Serious: Yes (Other)
  Sender: FDA-Public Use
  Company Number: BR-PFIZER INC-2013363365

PATIENT
  Age: 52 Year
  Sex: Female
  Weight: 69 kg

DRUGS (2)
  1. CHAMPIX [Suspect]
     Indication: SMOKING CESSATION THERAPY
     Dosage: UNK
     Route: 048
     Dates: start: 2010
  2. TRANSAMIN [Concomitant]

REACTIONS (5)
  - Gastric ulcer [Unknown]
  - Duodenal ulcer [Unknown]
  - Benign uterine neoplasm [Unknown]
  - Uterine haemorrhage [Unknown]
  - Abdominal discomfort [Unknown]
